FAERS Safety Report 10311334 (Version 1)
Quarter: 2014Q3

REPORT INFORMATION
  Report Type: Report from Study
  Country: US (occurrence: US)
  Receive Date: 20140717
  Receipt Date: 20140717
  Transmission Date: 20150326
  Serious: Yes (Hospitalization)
  Sender: FDA-Public Use
  Company Number: US-MERCK-1407USA006334

PATIENT
  Age: 67 Year
  Sex: Female
  Weight: 68.13 kg

DRUGS (4)
  1. VORINOSTAT [Suspect]
     Active Substance: VORINOSTAT
     Dosage: 200 MG, BID, ON DAYS 1-5 AND 8-12, CYCLE 1
     Route: 048
     Dates: start: 20140514
  2. ALISERTIB [Suspect]
     Active Substance: ALISERTIB
     Dosage: 20 MG, BID, ON DAYS 1-3 AND 8-10, CYCLE 1
     Route: 048
     Dates: start: 20140514
  3. VORINOSTAT [Suspect]
     Active Substance: VORINOSTAT
     Indication: LYMPHOMA
     Dosage: 200 MG, BID, ON DAYS 1-5 AND 8-12, CYCLE 3
     Route: 048
     Dates: start: 20140625, end: 20140706
  4. ALISERTIB [Suspect]
     Active Substance: ALISERTIB
     Indication: LYMPHOMA
     Dosage: 20 MG, BID, ON DAYS 1-3 AND 8-10, CYCLE 3
     Route: 048
     Dates: start: 20140625, end: 20140704

REACTIONS (1)
  - Embolism [Not Recovered/Not Resolved]

NARRATIVE: CASE EVENT DATE: 20140710
